FAERS Safety Report 4909115-2 (Version None)
Quarter: 2006Q1

REPORT INFORMATION
  Report Type: 
  Country: None (occurrence: None)
  Receive Date: 20060210
  Receipt Date: 20060210
  Transmission Date: 20060701
  Serious: Yes (Hospitalization)
  Sender: FDA-Public Use
  Company Number: None

PATIENT
  Age: 64 Year
  Sex: Male
  Weight: 101.1521 kg

DRUGS (4)
  1. TAXOTERE [Suspect]
     Indication: URETERIC CANCER METASTATIC
     Dosage: 171.75 MG IV Q3 WEEKS
     Route: 042
     Dates: start: 20050509
  2. GLEEVEC [Suspect]
     Indication: URETERIC CANCER METASTATIC
     Dosage: 400 MG PO DAILY FOR 6 D
     Route: 048
     Dates: start: 20050505, end: 20050509
  3. D5W 500 [Concomitant]
  4. CA GLUCONATE [Concomitant]

REACTIONS (3)
  - HYDRONEPHROSIS [None]
  - NEPHROSTOMY [None]
  - NEPHROSTOMY TUBE PLACEMENT [None]
